FAERS Safety Report 13720903 (Version 4)
Quarter: 2017Q3

REPORT INFORMATION
  Report Type: Spontaneous
  Country: US (occurrence: US)
  Receive Date: 20170706
  Receipt Date: 20170807
  Transmission Date: 20171127
  Serious: No
  Sender: FDA-Public Use
  Company Number: PHHY2017US096941

PATIENT
  Age: 62 Year
  Sex: Female
  Weight: 59.41 kg

DRUGS (1)
  1. DICLOFENAC POTASSIUM. [Suspect]
     Active Substance: DICLOFENAC POTASSIUM
     Indication: MIGRAINE
     Dosage: UNK UNK, QD, (1 PACKET WITH 1-2 OUNCES OF WATER, DRINK IMMEDIATELY AS A SINGLE DOSE (AS NEEDED)
     Route: 048
     Dates: start: 20170511, end: 2017

REACTIONS (1)
  - Drug ineffective [Recovered/Resolved]

NARRATIVE: CASE EVENT DATE: 2017
